FAERS Safety Report 10046452 (Version 1)
Quarter: 2014Q1

REPORT INFORMATION
  Report Type: Spontaneous
  Country: US (occurrence: US)
  Receive Date: 20140331
  Receipt Date: 20140331
  Transmission Date: 20141002
  Serious: No
  Sender: FDA-Public Use
  Company Number: US-SHIRE-US201400882

PATIENT
  Age: 18 Year
  Sex: Female
  Weight: 54.42 kg

DRUGS (3)
  1. VYVANSE [Suspect]
     Indication: ATTENTION DEFICIT/HYPERACTIVITY DISORDER
     Dosage: 40 MG, 1X/DAY:QD
     Route: 048
     Dates: start: 2010, end: 201112
  2. LAMICTAL [Concomitant]
     Indication: ATTENTION DEFICIT/HYPERACTIVITY DISORDER
     Dosage: 25 MG, UNKNOWN
     Route: 065
     Dates: start: 2011, end: 2011
  3. LAMICTAL [Concomitant]
     Indication: IRRITABILITY
     Dosage: 100 MG, UNKNOWN
     Route: 065
     Dates: start: 2011, end: 201112

REACTIONS (1)
  - Exposure during pregnancy [Recovered/Resolved]
